FAERS Safety Report 5720065-4 (Version None)
Quarter: 2008Q2

REPORT INFORMATION
  Report Type: 
  Country: None (occurrence: None)
  Receive Date: 20080423
  Receipt Date: 20070807
  Transmission Date: 20081010
  Serious: Yes (Death)
  Sender: FDA-Public Use
  Company Number: 245861

PATIENT
  Age: 63 Year
  Sex: Female

DRUGS (2)
  1. AVASTIN [Suspect]
     Indication: OVARIAN CANCER
     Dosage: 10 MG/KG, Q3W, INTRAVENOUS
     Route: 042
  2. XELODA [Concomitant]

REACTIONS (1)
  - DISEASE PROGRESSION [None]
